FAERS Safety Report 11935616 (Version 1)
Quarter: 2016Q1

REPORT INFORMATION
  Report Type: Report from Study
  Country: US (occurrence: US)
  Receive Date: 20160121
  Receipt Date: 20160121
  Transmission Date: 20160526
  Serious: No
  Sender: FDA-Public Use
  Company Number: PHEH2014US008037

PATIENT
  Age: 34 Year
  Sex: Male

DRUGS (5)
  1. PEGANONE [Concomitant]
     Active Substance: ETHOTOIN
     Indication: PRODUCT USED FOR UNKNOWN INDICATION
     Dosage: UNK UKN, UNK
     Route: 065
  2. TEGRETOL [Concomitant]
     Active Substance: CARBAMAZEPINE
     Indication: PRODUCT USED FOR UNKNOWN INDICATION
     Dosage: UNK UKN, UNK
     Route: 065
  3. ZONEGRAN [Concomitant]
     Active Substance: ZONISAMIDE
     Indication: PRODUCT USED FOR UNKNOWN INDICATION
     Dosage: UNK UKN, UNK
     Route: 065
  4. AFINITOR [Suspect]
     Active Substance: EVEROLIMUS
     Indication: TUBEROUS SCLEROSIS
     Dosage: 10 MG, QD
     Route: 048
     Dates: start: 20140418, end: 20140826
  5. ZOLOFT [Concomitant]
     Active Substance: SERTRALINE HYDROCHLORIDE
     Indication: PRODUCT USED FOR UNKNOWN INDICATION
     Dosage: UNK UKN, UNK
     Route: 065

REACTIONS (3)
  - Nasopharyngitis [Recovered/Resolved]
  - Headache [Recovered/Resolved]
  - Breath odour [Unknown]

NARRATIVE: CASE EVENT DATE: 20140418
